FAERS Safety Report 6222846-X (Version None)
Quarter: 2009Q2

REPORT INFORMATION
  Report Type: 
  Country: None (occurrence: None)
  Receive Date: 20090611
  Receipt Date: 20090602
  Transmission Date: 20091009
  Serious: Yes (Hospitalization)
  Sender: FDA-Public Use
  Company Number: B0576962A

PATIENT
  Sex: Female

DRUGS (5)
  1. RETROVIR [Suspect]
     Indication: ANTIVIRAL PROPHYLAXIS
     Dosage: 3MGK PER DAY
     Route: 042
     Dates: start: 20090413
  2. RETROVIR [Suspect]
     Dosage: 3MGK PER DAY
     Route: 048
     Dates: start: 20090420, end: 20090420
  3. EPIVIR [Suspect]
     Indication: ANTIVIRAL PROPHYLAXIS
     Dosage: 4MGK PER DAY
     Route: 048
     Dates: start: 20090413, end: 20090422
  4. RETROVIR [Suspect]
     Dates: start: 20090413, end: 20090413
  5. EPIVIR [Suspect]
     Dates: start: 20090413, end: 20090413

REACTIONS (4)
  - ABDOMINAL DISTENSION [None]
  - NECROTISING COLITIS [None]
  - PNEUMATOSIS INTESTINALIS [None]
  - RECTAL HAEMORRHAGE [None]
